FAERS Safety Report 19012388 (Version 1)
Quarter: 2021Q1

REPORT INFORMATION
  Report Type: Spontaneous
  Country: US (occurrence: US)
  Receive Date: 20210315
  Receipt Date: 20210315
  Transmission Date: 20210420
  Serious: No
  Sender: FDA-Public Use
  Company Number: US-SA-2021SA078037

PATIENT
  Age: 64 Year
  Sex: Female

DRUGS (1)
  1. AMBIEN [Suspect]
     Active Substance: ZOLPIDEM TARTRATE
     Indication: INSOMNIA
     Dosage: DRUG STRUCTURE DOSAGE : 10 MG DRUG INTERVAL DOSAGE : ONCE AT BEDTIME
     Route: 065

REACTIONS (1)
  - Pain [Unknown]
